FAERS Safety Report 8795912 (Version 4)
Quarter: 2012Q4

REPORT INFORMATION
  Report Type: 
  Country: US (occurrence: US)
  Receive Date: 20120919
  Receipt Date: 20121211
  Transmission Date: 20130627
  Serious: Yes (Other)
  Sender: FDA-Public Use
  Company Number: US-PFIZER INC-2012230747

PATIENT
  Age: 55 Year
  Sex: Female

DRUGS (7)
  1. NEURONTIN [Suspect]
     Dosage: 600 mg, 4x/day
     Route: 048
  2. CYMBALTA [Concomitant]
     Dosage: UNK
  3. FLEXEN [Concomitant]
     Dosage: UNK
  4. TRAZODONE [Concomitant]
     Dosage: UNK
  5. PERCOCET [Concomitant]
     Dosage: UNK
  6. IMURAN [Concomitant]
     Dosage: UNK
  7. VYVANSE [Concomitant]
     Dosage: UNK

REACTIONS (2)
  - Back disorder [Unknown]
  - Pain [Unknown]
